FAERS Safety Report 6831918-8 (Version None)
Quarter: 2010Q3

REPORT INFORMATION
  Report Type: 
  Country: None (occurrence: None)
  Receive Date: 20100712
  Receipt Date: 20100701
  Transmission Date: 20110219
  Serious: Yes (Hospitalization)
  Sender: FDA-Public Use
  Company Number: JP-MERCK-1006USA03208

PATIENT
  Age: 65 Year
  Sex: Male

DRUGS (9)
  1. EMEND [Suspect]
     Indication: PROPHYLAXIS OF NAUSEA AND VOMITING
     Route: 048
     Dates: start: 20100513, end: 20100513
  2. EMEND [Suspect]
     Route: 048
     Dates: start: 20100514, end: 20100515
  3. PLATOSIN [Concomitant]
     Route: 065
     Dates: start: 20100513, end: 20100513
  4. VEPESID [Concomitant]
     Route: 065
     Dates: start: 20100513
  5. KYTRIL [Concomitant]
     Route: 065
     Dates: start: 20100513, end: 20100515
  6. DECADRON PHOSPHATE [Concomitant]
     Route: 065
     Dates: start: 20100513
  7. SPIRIVA [Concomitant]
     Route: 065
  8. OMEPRAL [Concomitant]
     Route: 065
  9. LASTET [Concomitant]
     Route: 065
     Dates: start: 20100513, end: 20100515

REACTIONS (1)
  - INAPPROPRIATE ANTIDIURETIC HORMONE SECRETION [None]
